FAERS Safety Report 4882725-7 (Version None)
Quarter: 2005Q4

REPORT INFORMATION
  Report Type: 
  Country: None (occurrence: None)
  Receive Date: 20051201
  Receipt Date: 20050917
  Transmission Date: 20060501
  Serious: No
  Sender: FDA-Public Use
  Company Number: 2005PV002206

PATIENT
  Age: 69 Year
  Sex: Female
  Weight: 87.5442 kg

DRUGS (8)
  1. BYETTA [Suspect]
     Indication: DIABETES MELLITUS NON-INSULIN-DEPENDENT
     Dosage: 5 MCG; BID; SC
     Route: 058
     Dates: start: 20050915
  2. NIACIN [Suspect]
     Indication: BLOOD HOMOCYSTEINE
     Dates: start: 20050915
  3. ACTOS [Concomitant]
  4. GLIPIZIDE [Concomitant]
  5. LIPITOR [Concomitant]
  6. NIACIN [Concomitant]
  7. METANX [Concomitant]
  8. LANTUS [Concomitant]

REACTIONS (4)
  - ASTHENIA [None]
  - DECREASED APPETITE [None]
  - FLUSHING [None]
  - NAUSEA [None]
